FAERS Safety Report 5638669-6 (Version None)
Quarter: 2008Q1

REPORT INFORMATION
  Report Type: 
  Country: None (occurrence: None)
  Receive Date: 20080226
  Receipt Date: 20071029
  Transmission Date: 20080703
  Serious: No
  Sender: FDA-Public Use
  Company Number: A0683045A

PATIENT
  Age: 65 Year
  Sex: Female

DRUGS (15)
  1. IMITREX [Suspect]
     Indication: MIGRAINE
     Dosage: 1INJ AS REQUIRED
     Route: 058
     Dates: start: 19960101
  2. ASPIRIN [Concomitant]
  3. PREVACID [Concomitant]
  4. FLONASE [Concomitant]
  5. VERELAN PM [Concomitant]
  6. ADVAIR DISKUS 100/50 [Concomitant]
  7. ZOCOR [Concomitant]
  8. LASIX [Concomitant]
  9. KLOR-CON [Concomitant]
  10. HECTOROL [Concomitant]
  11. UNSPECIFIED MEDICATION [Concomitant]
  12. TRIAMCINOLONE ACETONIDE [Concomitant]
  13. CORDRAN TAPE [Concomitant]
  14. LIBRIUM [Concomitant]
  15. GABAPENTIN [Concomitant]

REACTIONS (4)
  - DRUG INEFFECTIVE [None]
  - PHARMACEUTICAL PRODUCT COMPLAINT [None]
  - RASH [None]
  - SKIN DISCOLOURATION [None]
